FAERS Safety Report 5266189-X (Version None)
Quarter: 2007Q1

REPORT INFORMATION
  Report Type: 
  Country: None (occurrence: None)
  Receive Date: 20070315
  Receipt Date: 20070314
  Transmission Date: 20070707
  Serious: Yes (Other)
  Sender: FDA-Public Use
  Company Number: US-BRISTOL-MYERS SQUIBB COMPANY-13713664

PATIENT
  Age: 85 Year
  Sex: Male
  Weight: 68 kg

DRUGS (11)
  1. COUMADIN [Suspect]
     Indication: ATRIAL FIBRILLATION
     Dosage: 2.5MG/D ALTERNATING WITH 5MG/D
     Route: 048
     Dates: start: 20061001
  2. COUMADIN [Suspect]
     Indication: ATRIAL FIBRILLATION
     Route: 048
     Dates: start: 20061001
  3. NIFEDIPINE [Concomitant]
  4. ATENOLOL [Concomitant]
  5. DIOVAN [Concomitant]
  6. PROSCAR [Concomitant]
  7. HYTRIN [Concomitant]
  8. CLONAZEPAM [Concomitant]
  9. MYSOLINE [Concomitant]
  10. ASPIRIN [Concomitant]
  11. CHOLESTYRAMINE [Concomitant]

REACTIONS (6)
  - DIZZINESS [None]
  - FALL [None]
  - GAIT DISTURBANCE [None]
  - INJURY [None]
  - INTERNATIONAL NORMALISED RATIO FLUCTUATION [None]
  - STOMACH DISCOMFORT [None]
